FAERS Safety Report 6525049-4 (Version None)
Quarter: 2009Q4

REPORT INFORMATION
  Report Type: 
  Country: None (occurrence: None)
  Receive Date: 20091224
  Receipt Date: 20091214
  Transmission Date: 20100525
  Serious: Yes (Hospitalization)
  Sender: FDA-Public Use
  Company Number: DSA_42226_2009

PATIENT
  Age: 64 Year
  Sex: Female

DRUGS (2)
  1. DILTIAZEM [Suspect]
     Indication: HYPERTENSION
     Dosage: (DF ORAL)
     Route: 048
     Dates: end: 20090525
  2. KETOPROFEN [Suspect]
     Indication: BACK PAIN
     Dosage: (150 MG BID ORAL)
     Route: 048
     Dates: start: 20090517, end: 20090523

REACTIONS (6)
  - CHEILITIS [None]
  - CULTURE URINE POSITIVE [None]
  - DRUG ERUPTION [None]
  - ESCHERICHIA INFECTION [None]
  - PYREXIA [None]
  - SYSTEMIC INFLAMMATORY RESPONSE SYNDROME [None]
